FAERS Safety Report 22396321 (Version 1)
Quarter: 2023Q2

REPORT INFORMATION
  Report Type: Spontaneous
  Country: US (occurrence: US)
  Receive Date: 20230601
  Receipt Date: 20230601
  Transmission Date: 20230722
  Serious: Yes (Other)
  Sender: FDA-Public Use
  Company Number: US-Teikoku Pharma USA-TPU2023-00332

PATIENT
  Age: 83 Year
  Sex: Male
  Weight: 79.904 kg

DRUGS (3)
  1. LIDOCAINE PATCH [Suspect]
     Active Substance: LIDOCAINE
     Indication: Sciatica
     Route: 061
  2. LIDOCAINE PATCH [Suspect]
     Active Substance: LIDOCAINE
     Indication: Carpal tunnel syndrome
  3. LIDOCAINE PATCH [Suspect]
     Active Substance: LIDOCAINE
     Indication: Bursitis

REACTIONS (6)
  - Product dose omission issue [Not Recovered/Not Resolved]
  - Hip surgery [Unknown]
  - Spinal operation [Unknown]
  - Carpal tunnel syndrome [Not Recovered/Not Resolved]
  - Bursitis [Unknown]
  - Hypoacusis [Not Recovered/Not Resolved]

NARRATIVE: CASE EVENT DATE: 20230101
